FAERS Safety Report 8010410-1 (Version None)
Quarter: 2011Q4

REPORT INFORMATION
  Report Type: 
  Country: None (occurrence: None)
  Receive Date: 20111222
  Receipt Date: 20111214
  Transmission Date: 20120403
  Serious: Yes (Death)
  Sender: FDA-Public Use
  Company Number: ADR-2011-11329

PATIENT
  Age: 51 Year
  Sex: Female

DRUGS (5)
  1. BUPIVACAINE HCL [Concomitant]
  2. DROPERIDOL [Concomitant]
  3. LIORESAL [Suspect]
     Indication: MUSCLE SPASTICITY
     Dosage: 45.18 MCG, DAILY, INTRA
  4. CLONIDINE [Concomitant]
  5. DILAUDID [Concomitant]

REACTIONS (1)
  - COLON CANCER METASTATIC [None]
